FAERS Safety Report 5087275-3 (Version None)
Quarter: 2006Q3

REPORT INFORMATION
  Report Type: 
  Country: None (occurrence: None)
  Receive Date: 20060801
  Receipt Date: 20051017
  Transmission Date: 20061208
  Serious: Yes (Other)
  Sender: FDA-Public Use
  Company Number: OMPQ-PR-0510S-1397

PATIENT
  Age: 36 Year
  Sex: Female

DRUGS (2)
  1. OMNIPAQUE 140 [Suspect]
     Indication: ABDOMINAL PAIN
     Dosage: 80 ML, SINGLE DOSE, I.V.
     Route: 042
     Dates: start: 20051014, end: 20051014
  2. GASTROGRAFIN (GASTROVIEW) [Concomitant]

REACTIONS (1)
  - ANAPHYLACTOID REACTION [None]
